FAERS Safety Report 10761611 (Version 1)
Quarter: 2015Q1

REPORT INFORMATION
  Report Type: Spontaneous
  Country: US (occurrence: None)
  Receive Date: 20150203
  Receipt Date: 20150203
  Transmission Date: 20150721
  Serious: Yes (Disabling)
  Sender: FDA-Public Use
  Company Number: None

PATIENT
  Age: 43 Year
  Sex: Male
  Weight: 108.86 kg

DRUGS (1)
  1. ANDROGEL [Suspect]
     Active Substance: TESTOSTERONE
     Indication: BLOOD TESTOSTERONE DECREASED
     Dosage: 1 PACKET, ONCE DAILY, APPLIED T A SURFACE USUALLY THE SKIN

REACTIONS (2)
  - Psoriasis [None]
  - Arthralgia [None]

NARRATIVE: CASE EVENT DATE: 20150202
